FAERS Safety Report 4551383-3 (Version None)
Quarter: 2005Q1

REPORT INFORMATION
  Report Type: 
  Country: None (occurrence: None)
  Receive Date: 20050113
  Receipt Date: 20041215
  Transmission Date: 20050727
  Serious: Yes (Hospitalization)
  Sender: FDA-Public Use
  Company Number: US-BRISTOL-MYERS SQUIBB COMPANY-12796090

PATIENT
  Age: 24 Year
  Sex: Male

DRUGS (8)
  1. ETOPOSIDE [Suspect]
     Indication: TESTIS CANCER
     Dosage: START DATE:  13-DEC-2004
     Route: 042
     Dates: start: 20041214, end: 20041214
  2. CISPLATIN [Suspect]
     Indication: TESTIS CANCER
     Dosage: START DATE:  13-DEC-2004
     Route: 042
     Dates: start: 20041214, end: 20041214
  3. IFOSFAMIDE [Suspect]
     Indication: TESTIS CANCER
     Route: 042
     Dates: start: 20041214, end: 20041214
  4. MESNA [Concomitant]
  5. ANZEMET [Concomitant]
  6. DECADRON [Concomitant]
  7. MANNITOL [Concomitant]
  8. NORMAL SALINE + POTASSIUM [Concomitant]

REACTIONS (1)
  - PARALYSIS [None]
